FAERS Safety Report 10510093 (Version 1)
Quarter: 2014Q4

REPORT INFORMATION
  Report Type: Spontaneous
  Country: US (occurrence: None)
  Receive Date: 20141008
  Receipt Date: 20141008
  Transmission Date: 20150528
  Serious: Yes (Other)
  Sender: FDA-Public Use
  Company Number: 2014HINREG0912

PATIENT

DRUGS (1)
  1. LEVETIRACETAM. [Suspect]
     Active Substance: LEVETIRACETAM
     Indication: SEIZURE

REACTIONS (6)
  - Drug ineffective [None]
  - Muscle twitching [None]
  - Petit mal epilepsy [None]
  - Dyskinesia [None]
  - Product substitution issue [None]
  - Secretion discharge [None]
